FAERS Safety Report 7083379-4 (Version None)
Quarter: 2010Q4

REPORT INFORMATION
  Report Type: 
  Country: None (occurrence: None)
  Receive Date: 20101104
  Receipt Date: 20101027
  Transmission Date: 20110411
  Serious: Yes (Other)
  Sender: FDA-Public Use
  Company Number: B0682766A

PATIENT
  Sex: Female

DRUGS (2)
  1. ALLI [Suspect]
     Dosage: 60MG UNKNOWN
     Route: 065
  2. ALCOHOL [Concomitant]

REACTIONS (5)
  - AGGRESSION [None]
  - DEPRESSION [None]
  - ILLUSION [None]
  - NASOPHARYNGITIS [None]
  - OFF LABEL USE [None]
